FAERS Safety Report 8241886-2 (Version None)
Quarter: 2012Q1

REPORT INFORMATION
  Report Type: 
  Country: None (occurrence: None)
  Receive Date: 20120328
  Receipt Date: 20120319
  Transmission Date: 20120608
  Serious: Yes (Death)
  Sender: FDA-Public Use
  Company Number: US-ACTELION-A-NJ2007-17498

PATIENT

DRUGS (4)
  1. CALCIUM CHANNEL BLOCKERS [Concomitant]
  2. TRACLEER [Suspect]
     Indication: PULMONARY ARTERIAL HYPERTENSION
     Dosage: UNK
     Route: 048
     Dates: start: 20070512
  3. COUMADIN [Concomitant]
  4. DIURETICS [Concomitant]

REACTIONS (5)
  - WEIGHT INCREASED [None]
  - DEATH [None]
  - OEDEMA PERIPHERAL [None]
  - INCREASED UPPER AIRWAY SECRETION [None]
  - DYSPNOEA [None]
